FAERS Safety Report 10162582 (Version 1)
Quarter: 2014Q2

REPORT INFORMATION
  Report Type: Spontaneous
  Country: TR (occurrence: TR)
  Receive Date: 20140509
  Receipt Date: 20140509
  Transmission Date: 20141212
  Serious: Yes (Hospitalization, Other)
  Sender: FDA-Public Use
  Company Number: TR-SA-2014SA058002

PATIENT
  Age: 20 Year
  Sex: Male

DRUGS (4)
  1. OXALIPLATIN [Suspect]
     Indication: COLON CANCER METASTATIC
     Route: 065
  2. FLUOROURACIL [Suspect]
     Indication: COLON CANCER METASTATIC
     Route: 065
  3. FOLINIC ACID [Suspect]
     Indication: COLON CANCER METASTATIC
     Route: 065
  4. BEVACIZUMAB [Suspect]
     Indication: COLON CANCER METASTATIC
     Route: 065

REACTIONS (13)
  - Diarrhoea [Unknown]
  - Metabolic acidosis [Recovering/Resolving]
  - PCO2 increased [Recovering/Resolving]
  - PO2 increased [Recovering/Resolving]
  - Blood bicarbonate decreased [Recovering/Resolving]
  - Base excess decreased [Recovering/Resolving]
  - Blood lactic acid increased [Recovering/Resolving]
  - Heart rate increased [Recovering/Resolving]
  - Respiratory depression [Recovering/Resolving]
  - Coma scale [Recovered/Resolved]
  - Loss of consciousness [Recovered/Resolved]
  - Unresponsive to stimuli [Recovered/Resolved]
  - Convulsion [Unknown]
